FAERS Safety Report 18355899 (Version 1)
Quarter: 2020Q4

REPORT INFORMATION
  Report Type: Spontaneous
  Country: DE (occurrence: DE)
  Receive Date: 20201007
  Receipt Date: 20201007
  Transmission Date: 20210114
  Serious: Yes (Hospitalization)
  Sender: FDA-Public Use
  Company Number: DE-EISAI MEDICAL RESEARCH-EC-2020-081203

PATIENT
  Age: 16 Year
  Sex: Male
  Weight: 45 kg

DRUGS (6)
  1. INOVELON [Suspect]
     Active Substance: RUFINAMIDE
     Indication: PARTIAL SEIZURES
     Route: 048
  2. LAMOTRIGIN [Suspect]
     Active Substance: LAMOTRIGINE
     Indication: PARTIAL SEIZURES
     Route: 048
  3. TOPIRAMAT [Suspect]
     Active Substance: TOPIRAMATE
     Indication: PARTIAL SEIZURES
     Route: 048
  4. FRISIUM [Suspect]
     Active Substance: CLOBAZAM
     Indication: PARTIAL SEIZURES
     Route: 048
  5. TOPIRAMAT [Suspect]
     Active Substance: TOPIRAMATE
     Route: 048
  6. BUCCOLAM [Suspect]
     Active Substance: MIDAZOLAM HYDROCHLORIDE
     Indication: EPILEPSY
     Dosage: 1 DOSAGE FORM, FREQUENCY UNKNOWN
     Route: 002

REACTIONS (2)
  - Status epilepticus [Unknown]
  - Epilepsy [Unknown]

NARRATIVE: CASE EVENT DATE: 20190623
